FAERS Safety Report 7047906-5 (Version None)
Quarter: 2010Q4

REPORT INFORMATION
  Report Type: 
  Country: None (occurrence: None)
  Receive Date: 20101015
  Receipt Date: 20101005
  Transmission Date: 20110411
  Serious: Yes (Other)
  Sender: FDA-Public Use
  Company Number: ES-ABBOTT-10P-144-0675487-00

PATIENT
  Age: 43 Year
  Sex: Male

DRUGS (5)
  1. NORVIR [Suspect]
     Indication: HIV INFECTION
     Route: 048
     Dates: start: 20080101, end: 20090501
  2. FOSAMPRENAVIR [Interacting]
     Indication: HIV INFECTION
     Route: 048
     Dates: start: 20080101, end: 20090501
  3. EMTRICITABINE W/TENOFOVIR [Interacting]
     Indication: HIV INFECTION
     Dosage: 200/245MG
     Route: 048
     Dates: start: 20080101, end: 20090501
  4. KALETRA [Concomitant]
     Indication: PRODUCT USED FOR UNKNOWN INDICATION
  5. KIVEXA [Concomitant]
     Indication: PRODUCT USED FOR UNKNOWN INDICATION

REACTIONS (1)
  - OSTEONECROSIS [None]
